FAERS Safety Report 7799636 (Version 4)
Quarter: 2015Q1

REPORT INFORMATION
  Report Type: Spontaneous
  Country: US (occurrence: US)
  Receive Date: 20110204
  Receipt Date: 20150330
  Transmission Date: 20150721
  Serious: Yes (Hospitalization, Other)
  Sender: FDA-Public Use
  Company Number: US-AMGEN-USASP2011005367

PATIENT
  Age: 51 Year
  Sex: Female

DRUGS (3)
  1. ENBREL [Suspect]
     Active Substance: ETANERCEPT
     Indication: PSORIASIS
  2. ENBREL [Suspect]
     Active Substance: ETANERCEPT
     Indication: ANKYLOSING SPONDYLITIS
     Dosage: 50 MG, QWK
     Route: 065
     Dates: start: 20100101
  3. ENBREL [Suspect]
     Active Substance: ETANERCEPT
     Indication: PSORIATIC ARTHROPATHY

REACTIONS (21)
  - Aphthous stomatitis [Unknown]
  - Injection site urticaria [Not Recovered/Not Resolved]
  - Injection site erythema [Not Recovered/Not Resolved]
  - Mass [Not Recovered/Not Resolved]
  - Psoriasis [Recovered/Resolved]
  - Injection site pruritus [Not Recovered/Not Resolved]
  - Dyspnoea [Unknown]
  - Injection site pain [Recovered/Resolved]
  - Injection site swelling [Not Recovered/Not Resolved]
  - Precancerous cells present [Recovered/Resolved]
  - Injection site reaction [Not Recovered/Not Resolved]
  - Goitre [Recovered/Resolved]
  - Haemorrhoids [Not Recovered/Not Resolved]
  - Intestinal mass [Recovered/Resolved]
  - Wrist fracture [Unknown]
  - Diarrhoea [Unknown]
  - Psoriatic arthropathy [Recovered/Resolved]
  - Fall [Unknown]
  - Weight increased [Not Recovered/Not Resolved]
  - Lichen planus [Recovered/Resolved]
  - Hypersensitivity [Unknown]

NARRATIVE: CASE EVENT DATE: 201001
